FAERS Safety Report 17723592 (Version 1)
Quarter: 2020Q2

REPORT INFORMATION
  Report Type: Spontaneous
  Country: US (occurrence: US)
  Receive Date: 20200428
  Receipt Date: 20200428
  Transmission Date: 20200714
  Serious: No
  Sender: FDA-Public Use
  Company Number: None

PATIENT
  Age: 58 Year
  Sex: Female

DRUGS (21)
  1. LACTULOSE. [Concomitant]
     Active Substance: LACTULOSE
  2. LYRICA [Concomitant]
     Active Substance: PREGABALIN
  3. DICYCLOMINE [Concomitant]
     Active Substance: DICYCLOMINE HYDROCHLORIDE
  4. PERCOCET [Concomitant]
     Active Substance: ACETAMINOPHEN\OXYCODONE HYDROCHLORIDE
  5. PHENERGAN [Concomitant]
     Active Substance: PROMETHAZINE HYDROCHLORIDE
  6. SUDAFED [Concomitant]
     Active Substance: PSEUDOEPHEDRINE HYDROCHLORIDE
  7. VITAMIN B6 [Concomitant]
     Active Substance: PYRIDOXINE HYDROCHLORIDE
  8. ZINC SULFATE. [Concomitant]
     Active Substance: ZINC SULFATE
  9. ISONIAZID. [Concomitant]
     Active Substance: ISONIAZID
  10. ENULOSE [Concomitant]
     Active Substance: LACTULOSE
  11. LASIX [Concomitant]
     Active Substance: FUROSEMIDE
  12. XIFAXAN [Suspect]
     Active Substance: RIFAXIMIN
     Indication: HEPATIC FAILURE
     Route: 048
  13. FUROSEMIDE. [Concomitant]
     Active Substance: FUROSEMIDE
  14. ALDACTONE [Concomitant]
     Active Substance: SPIRONOLACTONE
  15. MULTI FOR HER [Concomitant]
  16. METHOCARBAMOL. [Concomitant]
     Active Substance: METHOCARBAMOL
  17. NADOLOL. [Concomitant]
     Active Substance: NADOLOL
  18. SPIRONOLACTONE. [Concomitant]
     Active Substance: SPIRONOLACTONE
  19. AMITRIPTYLINE [Concomitant]
     Active Substance: AMITRIPTYLINE
  20. LEXAPRO [Concomitant]
     Active Substance: ESCITALOPRAM OXALATE
  21. VITAMIN B12 [Concomitant]
     Active Substance: CYANOCOBALAMIN

REACTIONS (1)
  - Hepatic cancer [None]
